FAERS Safety Report 7806086-6 (Version None)
Quarter: 2011Q4

REPORT INFORMATION
  Report Type: 
  Country: None (occurrence: None)
  Receive Date: 20111011
  Receipt Date: 20111006
  Transmission Date: 20120403
  Serious: No
  Sender: FDA-Public Use
  Company Number: US-PFIZER INC-2011239388

PATIENT
  Sex: Male
  Weight: 118 kg

DRUGS (2)
  1. PRISTIQ [Suspect]
     Indication: DEPRESSION
  2. PRISTIQ [Suspect]
     Indication: ANXIETY
     Dosage: UNK
     Dates: start: 20090101, end: 20111003

REACTIONS (4)
  - ANXIETY [None]
  - FEELING JITTERY [None]
  - FEELING ABNORMAL [None]
  - DRUG WITHDRAWAL SYNDROME [None]
